FAERS Safety Report 20885221 (Version 1)
Quarter: 2022Q2

REPORT INFORMATION
  Report Type: Spontaneous
  Country: RU (occurrence: RU)
  Receive Date: 20220527
  Receipt Date: 20220527
  Transmission Date: 20220721
  Serious: Yes (Other)
  Sender: FDA-Public Use
  Company Number: None

PATIENT
  Age: 8 Year
  Sex: Male
  Weight: 23 kg

DRUGS (1)
  1. ORKAMBI [Suspect]
     Active Substance: IVACAFTOR\LUMACAFTOR
     Indication: Cystic fibrosis
     Dosage: UNK
     Route: 048
     Dates: start: 20220412

REACTIONS (4)
  - Abdominal pain [Not Recovered/Not Resolved]
  - Ventricular tachycardia [Recovered/Resolved]
  - Apathy [Recovering/Resolving]
  - Decreased appetite [Not Recovered/Not Resolved]
